FAERS Safety Report 6636363-6 (Version None)
Quarter: 2010Q1

REPORT INFORMATION
  Report Type: 
  Country: None (occurrence: None)
  Receive Date: 20100311
  Receipt Date: 20100301
  Transmission Date: 20100710
  Serious: Yes (Hospitalization)
  Sender: FDA-Public Use
  Company Number: 232142J10USA

PATIENT
  Age: 45 Year
  Sex: Female

DRUGS (12)
  1. REBIF [Suspect]
     Indication: MULTIPLE SCLEROSIS
     Dosage: 44 MCG, 3 IN 1 WEEKS, SUBCUTANEOUS
     Route: 058
     Dates: start: 20091208
  2. PROCHLORPERAZINE MALEATE [Concomitant]
  3. PREDNISONE [Concomitant]
  4. TRAZODONE HCL [Concomitant]
  5. BACLOFEN [Concomitant]
  6. GABAPENTIN [Concomitant]
  7. REGLAN [Concomitant]
  8. NEXIUM [Concomitant]
  9. PRAMIPEXOLE (PRAMINPEXOLE) [Concomitant]
  10. OTHER MEDICATIONS (ALL OTHER THERAPEUTIC PRODUCTS) [Concomitant]
  11. LEVOTHYROXINE SODIUM [Concomitant]
  12. ADVIL LIQUI-GELS [Concomitant]

REACTIONS (4)
  - ABNORMAL BEHAVIOUR [None]
  - BLOOD POTASSIUM DECREASED [None]
  - CONFUSIONAL STATE [None]
  - URINARY TRACT INFECTION [None]
